FAERS Safety Report 7347073-4 (Version None)
Quarter: 2011Q1

REPORT INFORMATION
  Report Type: 
  Country: None (occurrence: None)
  Receive Date: 20110311
  Receipt Date: 20110228
  Transmission Date: 20110831
  Serious: Yes (Hospitalization, Other)
  Sender: FDA-Public Use
  Company Number: US-ELI_LILLY_AND_COMPANY-US201103000443

PATIENT
  Sex: Male
  Weight: 72.562 kg

DRUGS (4)
  1. CIALIS [Suspect]
     Indication: ERECTILE DYSFUNCTION
     Dosage: 10 MG, UNK
     Dates: start: 20100317
  2. CIALIS [Suspect]
     Dosage: 1 D/F, UNK
  3. MUSE [Concomitant]
     Indication: ERECTILE DYSFUNCTION
     Dosage: 1 D/F, UNK
  4. CIALIS [Suspect]
     Dosage: 5 MG, QOD

REACTIONS (3)
  - HEADACHE [None]
  - DRUG INEFFECTIVE [None]
  - PROSTATE CANCER [None]
